FAERS Safety Report 16931660 (Version 2)
Quarter: 2019Q4

REPORT INFORMATION
  Report Type: Spontaneous
  Country: US (occurrence: US)
  Receive Date: 20191017
  Receipt Date: 20191029
  Transmission Date: 20200122
  Serious: Yes (Hospitalization, Disabling, Other)
  Sender: FDA-Public Use
  Company Number: US-NAPPMUNDI-USA-2019-0148751

PATIENT
  Sex: Female

DRUGS (1)
  1. OXYCONTIN [Suspect]
     Active Substance: OXYCODONE HYDROCHLORIDE
     Indication: PAIN
     Dosage: UNK
     Route: 048
     Dates: start: 2001, end: 2004

REACTIONS (11)
  - Drug abuse [Unknown]
  - Maternal exposure during pregnancy [Recovered/Resolved]
  - Flashback [Unknown]
  - Thinking abnormal [Not Recovered/Not Resolved]
  - Road traffic accident [Unknown]
  - Nightmare [Unknown]
  - Post-traumatic stress disorder [Not Recovered/Not Resolved]
  - Splenic injury [Unknown]
  - Burning sensation [Unknown]
  - Drug dependence [Unknown]
  - Imprisonment [Unknown]

NARRATIVE: CASE EVENT DATE: 2001
